FAERS Safety Report 7244530-6 (Version None)
Quarter: 2011Q1

REPORT INFORMATION
  Report Type: 
  Country: None (occurrence: None)
  Receive Date: 20110125
  Receipt Date: 20110119
  Transmission Date: 20110831
  Serious: Yes (Life-Threatening, Hospitalization, Other)
  Sender: FDA-Public Use
  Company Number: DE-ELI_LILLY_AND_COMPANY-DE201008002928

PATIENT
  Sex: Female
  Weight: 80 kg

DRUGS (2)
  1. BYETTA [Suspect]
     Indication: TYPE 2 DIABETES MELLITUS
     Dosage: 10 MG, UNKNOWN
     Route: 058
     Dates: start: 20100226, end: 20100322
  2. BYETTA [Suspect]
     Dosage: 10 UG, UNKNOWN
     Route: 058
     Dates: start: 20100323, end: 20100607

REACTIONS (9)
  - INTRACARDIAC THROMBUS [None]
  - NAUSEA [None]
  - VOMITING [None]
  - TACHYCARDIA [None]
  - RENAL DISORDER [None]
  - MYOCARDIAL INFARCTION [None]
  - SINUS TACHYCARDIA [None]
  - URINARY TRACT INFECTION [None]
  - BLOOD GLUCOSE INCREASED [None]
